FAERS Safety Report 9812681 (Version 2)
Quarter: 2014Q1

REPORT INFORMATION
  Report Type: Spontaneous
  Country: US (occurrence: US)
  Receive Date: 20140113
  Receipt Date: 20140212
  Transmission Date: 20141002
  Serious: Yes (Hospitalization)
  Sender: FDA-Public Use
  Company Number: US-JNJFOC-20140102054

PATIENT
  Sex: Male
  Weight: 122.47 kg

DRUGS (2)
  1. STELARA [Suspect]
     Indication: PSORIASIS
     Route: 058
     Dates: start: 20130308
  2. METFORMIN [Concomitant]
     Route: 065

REACTIONS (1)
  - Investigation [Unknown]
